FAERS Safety Report 14893424 (Version 1)
Quarter: 2018Q2

REPORT INFORMATION
  Report Type: Spontaneous
  Country: US (occurrence: US)
  Receive Date: 20180426
  Receipt Date: 20180426
  Transmission Date: 20180711
  Serious: Yes (Hospitalization)
  Sender: FDA-Public Use
  Company Number: None

PATIENT
  Age: 14 Year
  Sex: Female

DRUGS (1)
  1. REMICADE [Suspect]
     Active Substance: INFLIXIMAB
     Indication: COLITIS ULCERATIVE
     Dosage: 500MG EVERY 8 WEEKS INTRAVENOUSLY
     Route: 042
     Dates: start: 20171108

REACTIONS (2)
  - Affect lability [None]
  - Suicidal ideation [None]

NARRATIVE: CASE EVENT DATE: 20180101
